FAERS Safety Report 18947287 (Version 2)
Quarter: 2021Q1

REPORT INFORMATION
  Report Type: Spontaneous
  Country: RU (occurrence: RU)
  Receive Date: 20210227
  Receipt Date: 20210303
  Transmission Date: 20210420
  Serious: Yes (Death, Other)
  Sender: FDA-Public Use
  Company Number: RU-ROCHE-2772169

PATIENT
  Age: 39 Year
  Sex: Female

DRUGS (13)
  1. TRASTUZUMAB EMTANSINE [Suspect]
     Active Substance: ADO-TRASTUZUMAB EMTANSINE
     Dosage: 5 CYCLES WITH CISPLATIN
     Route: 065
     Dates: start: 2018
  2. VINCRISTINE [Suspect]
     Active Substance: VINCRISTINE
     Indication: BREAST CANCER
     Dosage: 3 CYCLES WITH CAPECITABINE
     Route: 065
     Dates: start: 2011
  3. CAPECITABINE. [Suspect]
     Active Substance: CAPECITABINE
     Dosage: 5 CYCLES
     Route: 065
     Dates: start: 2013
  4. TRASTUZUMAB EMTANSINE [Suspect]
     Active Substance: ADO-TRASTUZUMAB EMTANSINE
     Indication: BREAST CANCER
     Dosage: 1 CYCLE WITH CAPECITABINE
     Route: 065
     Dates: start: 2011
  5. TRASTUZUMAB EMTANSINE [Suspect]
     Active Substance: ADO-TRASTUZUMAB EMTANSINE
     Dosage: 8 CYCLES WITH CAPECITABINE
     Route: 065
     Dates: start: 2017
  6. CAPECITABINE. [Suspect]
     Active Substance: CAPECITABINE
     Dosage: 1 CYCLE WITH TRASTUZUMAB
     Route: 065
     Dates: start: 2011
  7. PACLITAXEL. [Suspect]
     Active Substance: PACLITAXEL
     Indication: BREAST CANCER
     Route: 065
     Dates: start: 2011
  8. CAPECITABINE. [Suspect]
     Active Substance: CAPECITABINE
     Indication: BREAST CANCER
     Dosage: 3 CYCLES WITH VINCRISTINE
     Route: 048
     Dates: start: 2011
  9. TRASTUZUMAB EMTANSINE [Suspect]
     Active Substance: ADO-TRASTUZUMAB EMTANSINE
     Dosage: 10 CYCLES WITH DOCETAXEL
     Route: 065
     Dates: start: 2019
  10. CAPECITABINE. [Suspect]
     Active Substance: CAPECITABINE
     Dosage: 8 CYCLES WITH TRASTUZUMAB
     Route: 065
     Dates: start: 2017
  11. TRASTUZUMAB EMTANSINE [Suspect]
     Active Substance: ADO-TRASTUZUMAB EMTANSINE
     Dosage: 6 CYCLES WITH CAPECITABINE
     Route: 065
     Dates: start: 2016
  12. CISPLATIN. [Suspect]
     Active Substance: CISPLATIN
     Indication: BREAST CANCER
     Dosage: 5 CYCLES WITH TRASTUZUMAB
     Route: 065
     Dates: start: 2018
  13. DOCETAXEL. [Suspect]
     Active Substance: DOCETAXEL
     Indication: BREAST CANCER
     Dosage: 10 CYCLES WITH TRASTUZUMAB
     Route: 065
     Dates: start: 2019

REACTIONS (5)
  - Metastases to lung [Unknown]
  - Metastases to central nervous system [Unknown]
  - Death [Fatal]
  - Metastases to lymph nodes [Unknown]
  - Metastases to liver [Fatal]

NARRATIVE: CASE EVENT DATE: 2011
